FAERS Safety Report 20672988 (Version 1)
Quarter: 2022Q2

REPORT INFORMATION
  Report Type: Spontaneous
  Country: US (occurrence: None)
  Receive Date: 20220403
  Receipt Date: 20220403
  Transmission Date: 20220721
  Serious: Yes (Hospitalization)
  Sender: FDA-Public Use
  Company Number: None

PATIENT
  Age: 68 Year
  Sex: Male
  Weight: 91 kg

DRUGS (1)
  1. WARFARIN SODIUM [Suspect]
     Active Substance: WARFARIN SODIUM
     Indication: Transient ischaemic attack
     Dates: start: 20211220, end: 20220204

REACTIONS (2)
  - Haemorrhage intracranial [None]
  - Subdural haematoma [None]

NARRATIVE: CASE EVENT DATE: 20220204
